FAERS Safety Report 6613625-X (Version None)
Quarter: 2010Q1

REPORT INFORMATION
  Report Type: 
  Country: None (occurrence: None)
  Receive Date: 20100225
  Receipt Date: 20100219
  Transmission Date: 20100710
  Serious: Yes (Death)
  Sender: FDA-Public Use
  Company Number: 2010US000552

PATIENT
  Age: 61 Year
  Sex: Male

DRUGS (1)
  1. PROGRAF [Suspect]
     Indication: HEART TRANSPLANT
     Dosage: 5 MG, BID,

REACTIONS (1)
  - DEATH [None]
